FAERS Safety Report 11483772 (Version 1)
Quarter: 2015Q3

REPORT INFORMATION
  Report Type: Spontaneous
  Country: US (occurrence: US)
  Receive Date: 20150903
  Receipt Date: 20150903
  Transmission Date: 20151125
  Serious: Yes (Other)
  Sender: FDA-Public Use
  Company Number: US-ELI_LILLY_AND_COMPANY-US201204001689

PATIENT
  Age: 58 Year
  Sex: Female
  Weight: 72.56 kg

DRUGS (16)
  1. TRILEPTAL [Concomitant]
     Active Substance: OXCARBAZEPINE
     Indication: SEIZURE
     Dosage: 300 MG, BID
  2. SIMVASTATIN. [Concomitant]
     Active Substance: SIMVASTATIN
     Dosage: 20 MG, QD
  3. CYMBALTA [Suspect]
     Active Substance: DULOXETINE HYDROCHLORIDE
     Indication: DEPRESSION
     Dosage: 30 MG, QD
     Route: 048
     Dates: start: 20120119, end: 20120226
  4. NEXIUM                                  /USA/ [Concomitant]
     Dosage: 40 MG, QD
  5. CYMBALTA [Suspect]
     Active Substance: DULOXETINE HYDROCHLORIDE
     Dosage: 60 MG, QD
     Route: 048
     Dates: start: 20120227
  6. CALCIUM CITRATE [Concomitant]
     Active Substance: CALCIUM CITRATE
     Dosage: 600 MG, BID
  7. CYMBALTA [Suspect]
     Active Substance: DULOXETINE HYDROCHLORIDE
     Dosage: 30 MG, QD
     Route: 048
  8. BABY ASPIRIN [Concomitant]
     Active Substance: ASPIRIN
     Dosage: 81 MG, QD
  9. NITROGLYCERIN. [Concomitant]
     Active Substance: NITROGLYCERIN
     Indication: CHEST PAIN
     Dosage: 0.4 MG, PRN
     Route: 060
  10. EXCEDRIN [Concomitant]
     Active Substance: ACETAMINOPHEN\ASPIRIN\CAFFEINE
     Indication: HEADACHE
     Dosage: UNK, PRN
  11. XANAX                                   /USA/ [Concomitant]
     Dosage: 0.5 MG, PRN
  12. GABAPENTIN. [Concomitant]
     Active Substance: GABAPENTIN
     Dosage: 600 MG, TID
  13. FIORICET [Concomitant]
     Active Substance: ACETAMINOPHEN\BUTALBITAL\CAFFEINE
     Dosage: UNK, PRN
  14. PROZAC [Concomitant]
     Active Substance: FLUOXETINE HYDROCHLORIDE
     Dosage: 20 MG, QD
  15. PROZAC [Concomitant]
     Active Substance: FLUOXETINE HYDROCHLORIDE
     Dosage: 40 MG, QD
     Dates: start: 20120322
  16. DEXA [Concomitant]
     Active Substance: DEXAMETHASONE
     Indication: OSTEOPENIA

REACTIONS (22)
  - Blood triglycerides increased [Unknown]
  - Headache [Unknown]
  - Polyneuropathy [Unknown]
  - Sensory disturbance [Unknown]
  - Memory impairment [Unknown]
  - Gait disturbance [Unknown]
  - Dementia [Unknown]
  - Tooth infection [Unknown]
  - Hypoaesthesia [Unknown]
  - Partial seizures [Recovered/Resolved]
  - Presyncope [Unknown]
  - Paraesthesia [Unknown]
  - Cervicogenic headache [Unknown]
  - Neck pain [Unknown]
  - Disturbance in attention [Unknown]
  - Muscular weakness [Unknown]
  - Drug ineffective [Unknown]
  - Balance disorder [Unknown]
  - Dizziness [Unknown]
  - Visual impairment [Unknown]
  - Romberg test positive [Unknown]
  - Mood altered [Unknown]

NARRATIVE: CASE EVENT DATE: 20120301
